FAERS Safety Report 16685260 (Version 2)
Quarter: 2019Q4

REPORT INFORMATION
  Report Type: Spontaneous
  Country: AT (occurrence: AT)
  Receive Date: 20190808
  Receipt Date: 20191014
  Transmission Date: 20200122
  Serious: Yes (Other)
  Sender: FDA-Public Use
  Company Number: AT-AMGEN-AUTSP2019122824

PATIENT
  Age: 80 Year
  Sex: Male

DRUGS (1)
  1. VECTIBIX [Suspect]
     Active Substance: PANITUMUMAB
     Indication: COLORECTAL CANCER METASTATIC
     Dosage: UNK
     Route: 065

REACTIONS (5)
  - Carcinoembryonic antigen increased [Unknown]
  - Metastases to liver [Unknown]
  - Gene mutation [Unknown]
  - Colorectal cancer recurrent [Unknown]
  - Carbohydrate antigen 19-9 increased [Unknown]
